FAERS Safety Report 15399726 (Version 1)
Quarter: 2018Q3

REPORT INFORMATION
  Report Type: Report from Study
  Country: US (occurrence: US)
  Receive Date: 20180918
  Receipt Date: 20180918
  Transmission Date: 20181010
  Serious: Yes (Hospitalization)
  Sender: FDA-Public Use
  Company Number: US-SA-2017SA166113

PATIENT
  Age: 32 Year
  Sex: Male
  Weight: 150 kg

DRUGS (56)
  1. ALEMTUZUMAB [Suspect]
     Active Substance: ALEMTUZUMAB
     Indication: MULTIPLE SCLEROSIS
     Dosage: UNK UNK,UNK
     Route: 041
     Dates: start: 20090302, end: 20090306
  2. ALEMTUZUMAB [Suspect]
     Active Substance: ALEMTUZUMAB
     Dosage: UNK UNK,UNK
     Route: 041
     Dates: start: 20100609, end: 20100611
  3. OMEPRAZOLE. [Concomitant]
     Active Substance: OMEPRAZOLE
     Dosage: 20 MG,QD
     Route: 048
  4. PARACETAMOL [Concomitant]
     Active Substance: ACETAMINOPHEN
     Indication: PYREXIA
     Dosage: 2 DF,Q4H
     Route: 048
     Dates: start: 20120626
  5. OXYCODONE AND ACETAMINOPHEN [Concomitant]
     Active Substance: ACETAMINOPHEN\OXYCODONE HYDROCHLORIDE
     Indication: PROPHYLAXIS
     Dosage: 325 MG, UNK
     Route: 048
     Dates: start: 20140210
  6. ASPIRIN COX [ACETYLSALICYLIC ACID] [Concomitant]
     Dosage: 325 MG,QD
     Route: 048
     Dates: start: 20120612
  7. ACIDOPHILUS [LACTOBACILLUS ACIDOPHILUS] [Concomitant]
     Dosage: UNK UNK,BID
     Route: 048
  8. COLACE [Concomitant]
     Active Substance: DOCUSATE SODIUM
     Indication: CONSTIPATION
     Dosage: 100 MG,BID
     Route: 048
     Dates: start: 20131125
  9. VITAMIN D [ERGOCALCIFEROL] [Concomitant]
     Dosage: 1000 DF,QID
     Route: 048
     Dates: start: 20120626
  10. MIRALAX [Concomitant]
     Active Substance: POLYETHYLENE GLYCOL 3350
     Dosage: UNK UNK,TIW
     Route: 048
     Dates: start: 20120402
  11. BACLOFEN. [Concomitant]
     Active Substance: BACLOFEN
     Dosage: 1 DF,QID
     Route: 048
  12. SODIUM CHLORIDE. [Concomitant]
     Active Substance: SODIUM CHLORIDE
     Dosage: UNK UNK,PRN
     Route: 045
  13. MOTRIN [Concomitant]
     Active Substance: IBUPROFEN
     Indication: PAIN
     Dosage: 600 MG,PRN
     Route: 048
  14. PROPYLENE GLYCOL [Concomitant]
     Active Substance: PROPYLENE GLYCOL
     Indication: DRY EYE
     Dosage: 1 DF,PRN
     Route: 047
     Dates: start: 20130530
  15. OXYCODONE HYDROCHLORIDE;PARACETAMOL [Concomitant]
     Indication: PAIN
     Dosage: 2 DF,Q4H
     Route: 048
     Dates: start: 20140210
  16. BISACODYL. [Concomitant]
     Active Substance: BISACODYL
     Dosage: 5 MG,PRN
     Route: 048
     Dates: start: 20121203
  17. IBUPROFEN. [Concomitant]
     Active Substance: IBUPROFEN
     Indication: PAIN
     Dosage: 600 MG,Q6H
     Route: 048
     Dates: start: 20130902
  18. MINTOX [Concomitant]
     Active Substance: ALUMINUM HYDROXIDE\DIMETHICONE\MAGNESIUM HYDROXIDE
     Indication: ABDOMINAL DISCOMFORT
     Dosage: 20 ML,Q6H
     Route: 048
     Dates: start: 20120626
  19. POLYETHYLENE GLYCOL [Concomitant]
     Active Substance: POLYETHYLENE GLYCOLS
     Indication: PROPHYLAXIS
     Dosage: 17 G,QD
     Route: 048
     Dates: start: 20111229
  20. NEURONTIN [Concomitant]
     Active Substance: GABAPENTIN
     Indication: MULTIPLE SCLEROSIS
     Dosage: 300 MG,BID
     Route: 048
     Dates: start: 20140902
  21. TECFIDERA [Concomitant]
     Active Substance: DIMETHYL FUMARATE
     Indication: MULTIPLE SCLEROSIS
     Dosage: 240 MG,BID
     Route: 048
  22. VITAMIN B12 [Concomitant]
     Active Substance: CYANOCOBALAMIN
     Dosage: 1000 UG,UNK
     Route: 030
     Dates: start: 20150201
  23. ADDERALL [Concomitant]
     Active Substance: AMPHETAMINE ASPARTATE\AMPHETAMINE SULFATE\DEXTROAMPHETAMINE SACCHARATE\DEXTROAMPHETAMINE SULFATE
     Dosage: 10 MG,BID
     Route: 048
  24. ADDERALL [Concomitant]
     Active Substance: AMPHETAMINE ASPARTATE\AMPHETAMINE SULFATE\DEXTROAMPHETAMINE SACCHARATE\DEXTROAMPHETAMINE SULFATE
     Dosage: 10 MG,BID
     Route: 048
     Dates: start: 20141014
  25. OMEPRAZOLE. [Concomitant]
     Active Substance: OMEPRAZOLE
     Dosage: 40 MG, UNK
     Route: 048
     Dates: start: 20170508, end: 20170522
  26. VITAMIN D [ERGOCALCIFEROL] [Concomitant]
     Dosage: UNK UNK,QD
     Route: 048
  27. HYPROMELLOSE [Concomitant]
     Active Substance: HYPROMELLOSES
     Dosage: 1 DF,QID
     Route: 065
  28. ASPIRIN COX [ACETYLSALICYLIC ACID] [Concomitant]
     Dosage: 325 MG,QD
     Route: 048
     Dates: start: 20120812
  29. VITAMIN D3 [Concomitant]
     Active Substance: CHOLECALCIFEROL
     Dosage: 500 MG,BID
     Route: 048
  30. VITAMIN D3 [Concomitant]
     Active Substance: CHOLECALCIFEROL
     Dosage: 1000 DF,QID
     Route: 048
     Dates: start: 20120626
  31. CLINDAMYCIN HYDROCHLORIDE. [Concomitant]
     Active Substance: CLINDAMYCIN HYDROCHLORIDE
     Dosage: 600 MG,Q8H
     Route: 042
  32. PROPYLENE GLYCOL [Concomitant]
     Active Substance: PROPYLENE GLYCOL
     Dosage: 1 DF,PRN
     Route: 047
     Dates: start: 20130530
  33. MENTHOL. [Concomitant]
     Active Substance: MENTHOL
     Dosage: UNK UNK,QD
     Route: 061
     Dates: start: 20170815
  34. VITAMIN B12 [Concomitant]
     Active Substance: CYANOCOBALAMIN
     Indication: VITAMIN B12 DEFICIENCY
     Dosage: 1 ML,QD
     Route: 030
  35. ZOLOFT [Concomitant]
     Active Substance: SERTRALINE HYDROCHLORIDE
     Dosage: 200 MG,QD
     Route: 048
     Dates: start: 20150224
  36. PREDNISONE. [Concomitant]
     Active Substance: PREDNISONE
     Dosage: 20 MG,QD
     Route: 048
     Dates: start: 20170812, end: 20170815
  37. BOTOX [Concomitant]
     Active Substance: ONABOTULINUMTOXINA
     Indication: MUSCLE SPASTICITY
     Dosage: 100 DF,UNK
     Route: 065
     Dates: start: 20120727
  38. MULTIVITAMIN [VITAMINS NOS] [Concomitant]
     Indication: PROPHYLAXIS
     Dosage: 1 DF, UNK
     Route: 048
     Dates: start: 20140520
  39. LIORESAL [Concomitant]
     Active Substance: BACLOFEN
     Dosage: 20 MG,QID
     Route: 048
  40. OS?CAL + D [Concomitant]
     Dosage: 1 DF,BID
     Route: 048
  41. BISACODYL. [Concomitant]
     Active Substance: BISACODYL
     Dosage: 5 MG,QD
     Route: 048
     Dates: start: 20111228
  42. BISACODYL. [Concomitant]
     Active Substance: BISACODYL
     Dosage: 10 MG,QD
     Route: 054
  43. MILK OF MAGNESIA [Concomitant]
     Active Substance: MAGNESIUM HYDROXIDE
     Dosage: 30 ML,QD
     Route: 048
     Dates: start: 20120626
  44. BACLOFEN. [Concomitant]
     Active Substance: BACLOFEN
     Dosage: 20 MG,QID
     Route: 048
     Dates: start: 20120402
  45. CLINDAMYCIN HYDROCHLORIDE. [Concomitant]
     Active Substance: CLINDAMYCIN HYDROCHLORIDE
     Dosage: 300 MG,UNK
     Route: 065
  46. DOCUSATE SODIUM. [Concomitant]
     Active Substance: DOCUSATE SODIUM
     Indication: ADJUVANT THERAPY
     Dosage: 100 MG,QD
     Route: 048
     Dates: start: 20111228
  47. BISACODYL. [Concomitant]
     Active Substance: BISACODYL
     Indication: ADJUVANT THERAPY
     Dosage: 10 MG,QD
     Route: 048
  48. SYSTANE (HYPROMELLOSE 2910 (4000 MPA.S)) [Concomitant]
     Active Substance: HYPROMELLOSE 2910 (4000 MPA.S)
     Dosage: UNK UNK,TID
     Route: 065
  49. OMEPRAZOLE. [Concomitant]
     Active Substance: OMEPRAZOLE
     Dosage: 5000 DF, Q12H
     Route: 058
  50. PARACETAMOL [Concomitant]
     Active Substance: ACETAMINOPHEN
     Indication: PAIN
     Dosage: 325 MG,Q4H
     Route: 065
  51. SERTRALINE [Concomitant]
     Active Substance: SERTRALINE HYDROCHLORIDE
     Indication: PROPHYLAXIS
     Dosage: 200 MG
     Route: 048
     Dates: start: 20150123
  52. GABAPENTIN. [Concomitant]
     Active Substance: GABAPENTIN
     Indication: PROPHYLAXIS
     Dosage: 300 MG, BID
     Route: 048
     Dates: start: 20140902
  53. HYPROMELLOSE [Concomitant]
     Active Substance: HYPROMELLOSES
     Dosage: 2 DF,QD
     Route: 047
     Dates: start: 20130527
  54. POTASSIUM CHLORIDE. [Concomitant]
     Active Substance: POTASSIUM CHLORIDE
     Indication: PROPHYLAXIS
     Dosage: 20 MEQ, UNK
     Route: 048
     Dates: start: 20170902, end: 20170902
  55. HYDROCHLOROTHIAZIDE. [Concomitant]
     Active Substance: HYDROCHLOROTHIAZIDE
     Indication: OEDEMA
     Dosage: 12.5 MG,QD
     Route: 048
     Dates: start: 20130729
  56. OMEPRAZOLE. [Concomitant]
     Active Substance: OMEPRAZOLE
     Dosage: 20 MG,QD
     Route: 048
     Dates: start: 20170131, end: 20170214

REACTIONS (3)
  - Cellulitis [Recovered/Resolved]
  - Cellulitis [Recovered/Resolved with Sequelae]
  - Cellulitis [Unknown]

NARRATIVE: CASE EVENT DATE: 20170826
